FAERS Safety Report 20354334 (Version 2)
Quarter: 2022Q2

REPORT INFORMATION
  Report Type: Other
  Country: US (occurrence: None)
  Receive Date: 20220120
  Receipt Date: 20220419
  Transmission Date: 20220720
  Serious: No
  Sender: FDA-Public Use
  Company Number: US-ROCHE-2999953

PATIENT
  Age: 68 Year
  Sex: Female
  Weight: 69.008 kg

DRUGS (2)
  1. OCREVUS [Suspect]
     Active Substance: OCRELIZUMAB
     Indication: Relapsing-remitting multiple sclerosis
     Dosage: (PRESCRIBED AS INFUSE 300 MG IN DAY1 AND DAY 15 THEN 600 MG EVERY 6 MONTHS)?DATE OF TREATMENT: 07/MA
     Route: 042
     Dates: start: 202105
  2. COVID-19 VACCINE [Concomitant]
     Dosage: UNKNOWN
     Route: 065

REACTIONS (1)
  - COVID-19 [Not Recovered/Not Resolved]

NARRATIVE: CASE EVENT DATE: 20220106
